FAERS Safety Report 4741632-0 (Version None)
Quarter: 2005Q3

REPORT INFORMATION
  Report Type: 
  Country: None (occurrence: None)
  Receive Date: 20050801
  Receipt Date: 20050625
  Transmission Date: 20060218
  Serious: No
  Sender: FDA-Public Use
  Company Number: 2005PV000142

PATIENT
  Age: 54 Year
  Sex: Male

DRUGS (10)
  1. BYETTA [Suspect]
     Dosage: 5 UG; BID; SC
     Route: 058
     Dates: start: 20050616
  2. GLYBURIDE [Concomitant]
  3. METFORMIN [Concomitant]
  4. AVANDIA [Concomitant]
  5. COPEGUS [Concomitant]
  6. CELEBREX [Concomitant]
  7. LISINOPRIL [Concomitant]
  8. TOPROL-XL [Concomitant]
  9. ASPIRIN [Concomitant]
  10. PEGASUS (INTERFERON) [Concomitant]

REACTIONS (2)
  - DISTURBANCE IN ATTENTION [None]
  - INJECTION SITE DISCOLOURATION [None]
